FAERS Safety Report 8990243 (Version 1)
Quarter: 2012Q4

REPORT INFORMATION
  Report Type: 
  Country: FR (occurrence: FR)
  Receive Date: 20121228
  Receipt Date: 20121228
  Transmission Date: 20130627
  Serious: Yes (Other)
  Sender: FDA-Public Use
  Company Number: FR-MERCK-1212FRA009803

PATIENT
  Sex: Female

DRUGS (6)
  1. AERIUS [Suspect]
     Indication: PRODUCT USED FOR UNKNOWN INDICATION
     Dosage: UNK
     Route: 048
     Dates: start: 201209
  2. HUMIRA [Suspect]
     Indication: PRODUCT USED FOR UNKNOWN INDICATION
     Dosage: UNK
     Route: 058
     Dates: end: 201208
  3. HUMIRA [Suspect]
     Dosage: 40 mg, qow
     Route: 058
     Dates: start: 201209
  4. CYMBALTA [Concomitant]
     Indication: PRODUCT USED FOR UNKNOWN INDICATION
  5. TEMERIT [Concomitant]
     Indication: PRODUCT USED FOR UNKNOWN INDICATION
  6. KLIPAL [Concomitant]
     Indication: PRODUCT USED FOR UNKNOWN INDICATION

REACTIONS (1)
  - Anogenital warts [Not Recovered/Not Resolved]
